FAERS Safety Report 9523925 (Version 1)
Quarter: 2013Q3

REPORT INFORMATION
  Report Type: Spontaneous
  Country: US (occurrence: US)
  Receive Date: 20130916
  Receipt Date: 20130916
  Transmission Date: 20140515
  Serious: Yes (Other)
  Sender: FDA-Public Use
  Company Number: US-AMGEN-USASP2013064412

PATIENT
  Age: 57 Year
  Sex: Female

DRUGS (13)
  1. ENBREL [Suspect]
     Indication: PRODUCT USED FOR UNKNOWN INDICATION
     Dosage: UNK
     Route: 065
  2. HUMIRA [Suspect]
     Indication: RHEUMATOID ARTHRITIS
     Dosage: 40 MG, Q2WK
     Route: 065
     Dates: start: 200212, end: 2003
  3. REMICADE [Suspect]
     Dosage: UNK
  4. SIMVASTATIN [Suspect]
     Indication: BLOOD CHOLESTEROL INCREASED
     Dosage: UNK UNK, QD
     Route: 065
  5. ORENCIA [Suspect]
     Dosage: UNK
  6. ASA [Concomitant]
     Indication: POOR PERIPHERAL CIRCULATION
     Dosage: 81 MG, UNK
  7. METFORMIN [Concomitant]
     Indication: DIABETES MELLITUS
     Dosage: UNK
  8. FOLIC ACID [Concomitant]
     Dosage: 2400 MUG, QD
  9. B12                                /00056201/ [Concomitant]
     Dosage: 1000 MUG, QD
  10. URSODEOXYCHOLIC ACID [Concomitant]
     Indication: ULCER
     Dosage: 300 MG, UNK
  11. DEXILANT [Concomitant]
     Indication: ULCER
     Dosage: 60 MG, QD
  12. BENICAR [Concomitant]
     Indication: HYPERTENSION
     Dosage: 20 MG, QD
  13. HYDROXYCHLOROQUINE [Concomitant]
     Indication: RHEUMATOID ARTHRITIS
     Dosage: 200 MG, QD
     Dates: start: 2012

REACTIONS (5)
  - Fatigue [Unknown]
  - Blood cholesterol increased [Unknown]
  - Arthritis [Unknown]
  - Asthenia [Unknown]
  - Hip arthroplasty [Recovered/Resolved]
